FAERS Safety Report 9198719 (Version 1)
Quarter: 2013Q1

REPORT INFORMATION
  Report Type: Spontaneous
  Country: US (occurrence: None)
  Receive Date: 20120709
  Receipt Date: 20120709
  Transmission Date: 20140127
  Serious: Yes (Hospitalization)
  Sender: FDA-Public Use
  Company Number: PHEH2012US006203

PATIENT
  Age: 85 Year
  Sex: Female

DRUGS (1)
  1. GLEEVEC (IMATINIB) [Suspect]
     Indication: SOFT TISSUE CANCER
     Route: 048
     Dates: start: 201104

REACTIONS (4)
  - Cardiac failure congestive [None]
  - Anaemia [None]
  - Tumour ulceration [None]
  - Drug ineffective [None]
